FAERS Safety Report 8360052-3 (Version None)
Quarter: 2012Q2

REPORT INFORMATION
  Report Type: 
  Country: None (occurrence: None)
  Receive Date: 20120515
  Receipt Date: 20120509
  Transmission Date: 20120825
  Serious: Yes (Other)
  Sender: FDA-Public Use
  Company Number: PHHY2011CA61594

PATIENT
  Sex: Female

DRUGS (2)
  1. GILENYA [Suspect]
     Indication: RELAPSING-REMITTING MULTIPLE SCLEROSIS
     Dosage: 0.5 MG, DAILY
     Route: 048
     Dates: start: 20110706
  2. ZOLOFT [Concomitant]
     Dosage: 100 MG, QD

REACTIONS (16)
  - MACULOPATHY [None]
  - HEAD DISCOMFORT [None]
  - HYPOAESTHESIA [None]
  - HEPATIC PAIN [None]
  - MULTIPLE SCLEROSIS RELAPSE [None]
  - LIMB DISCOMFORT [None]
  - ABDOMINAL PAIN [None]
  - EYE PAIN [None]
  - BURNING SENSATION [None]
  - EYE DISORDER [None]
  - FATIGUE [None]
  - VISUAL IMPAIRMENT [None]
  - PARAESTHESIA [None]
  - ASTHENOPIA [None]
  - CHEST PAIN [None]
  - MUSCULAR WEAKNESS [None]
